FAERS Safety Report 7296353-X (Version None)
Quarter: 2011Q1

REPORT INFORMATION
  Report Type: 
  Country: None (occurrence: None)
  Receive Date: 20110211
  Receipt Date: 20110211
  Transmission Date: 20110831
  Serious: Yes (Other)
  Sender: FDA-Public Use
  Company Number: None

PATIENT
  Sex: Male
  Weight: 104.3273 kg

DRUGS (1)
  1. PRADAXA [Suspect]
     Indication: DRUG THERAPY CHANGED
     Dosage: 150 MG TWICE A DAY
     Dates: start: 20110113, end: 20110120

REACTIONS (2)
  - CHEST PAIN [None]
  - EAR PAIN [None]
